FAERS Safety Report 4903596-6 (Version None)
Quarter: 2006Q1

REPORT INFORMATION
  Report Type: 
  Country: None (occurrence: None)
  Receive Date: 20060208
  Receipt Date: 20060203
  Transmission Date: 20060701
  Serious: Yes (Hospitalization)
  Sender: FDA-Public Use
  Company Number: 2006SE00692

PATIENT
  Age: 2 Year

DRUGS (2)
  1. BLOPRESS [Suspect]
     Route: 048
     Dates: start: 20060126, end: 20060126
  2. AMLODIN [Suspect]
     Route: 048
     Dates: start: 20060126, end: 20060126

REACTIONS (1)
  - ACCIDENTAL DRUG INTAKE BY CHILD [None]
